FAERS Safety Report 24902698 (Version 2)
Quarter: 2025Q1

REPORT INFORMATION
  Report Type: Report from Study
  Country: EC (occurrence: EC)
  Receive Date: 20250130
  Receipt Date: 20250307
  Transmission Date: 20250408
  Serious: Yes (Hospitalization)
  Sender: EMD SERONO INC
  Company Number: EC-Merck Healthcare KGaA-2025003902

PATIENT
  Age: 8 Year
  Sex: Male

DRUGS (2)
  1. SAIZEN [Suspect]
     Active Substance: SOMATROPIN
     Indication: Growth hormone deficiency
     Dates: start: 20240716, end: 20241210
  2. SAIZEN [Suspect]
     Active Substance: SOMATROPIN
     Indication: Hypopituitarism

REACTIONS (8)
  - Haemolysis [Recovered/Resolved]
  - Influenza [Recovered/Resolved]
  - Gastroenteritis [Recovered/Resolved]
  - Increased appetite [Recovered/Resolved]
  - Arthropod bite [Recovered/Resolved]
  - Cough [Unknown]
  - Urticaria [Recovered/Resolved]
  - Therapy interrupted [Unknown]

NARRATIVE: CASE EVENT DATE: 20241210
